FAERS Safety Report 13193593 (Version 2)
Quarter: 2017Q4

REPORT INFORMATION
  Report Type: Spontaneous
  Country: US (occurrence: US)
  Receive Date: 20170207
  Receipt Date: 20171213
  Transmission Date: 20180320
  Serious: Yes (Hospitalization, Other)
  Sender: FDA-Public Use
  Company Number: US-MALLINCKRODT-T201700285

PATIENT
  Age: 55 Year
  Sex: Female

DRUGS (3)
  1. HYDROMORPHONE [Suspect]
     Active Substance: HYDROMORPHONE
     Indication: PAIN
     Dosage: 2 MG, Q4-6HR PRN
     Route: 048
     Dates: start: 20170106, end: 20170107
  2. HYDROMORPHONE [Suspect]
     Active Substance: HYDROMORPHONE
     Dosage: 4 MG
     Route: 048
     Dates: start: 20170106, end: 20170107
  3. FENTANYL TRANSDERMAL SYSTEM [Suspect]
     Active Substance: FENTANYL
     Indication: PAIN
     Dosage: 25 MCG/HR, Q72HR
     Route: 062
     Dates: start: 20161231, end: 20170107

REACTIONS (7)
  - Gait disturbance [Not Recovered/Not Resolved]
  - Fall [Recovered/Resolved]
  - Pneumonia [Not Recovered/Not Resolved]
  - Aspiration [Unknown]
  - Drug administration error [Recovered/Resolved]
  - Skin haemorrhage [Unknown]
  - Incoherent [Unknown]

NARRATIVE: CASE EVENT DATE: 20170107
